FAERS Safety Report 15280608 (Version 2)
Quarter: 2018Q4

REPORT INFORMATION
  Report Type: Spontaneous
  Country: US (occurrence: US)
  Receive Date: 20180815
  Receipt Date: 20181102
  Transmission Date: 20190204
  Serious: Yes (Hospitalization, Other)
  Sender: FDA-Public Use
  Company Number: US-UPSHER-SMITH LABORATORIES, LLC-2018USL00387

PATIENT
  Age: 74 Year
  Sex: Female
  Weight: 74.83 kg

DRUGS (11)
  1. PREDNISONE. [Concomitant]
     Active Substance: PREDNISONE
  2. LISINOPRIL. [Concomitant]
     Active Substance: LISINOPRIL
     Route: 048
  3. GARLIC PREPARATION [Concomitant]
  4. VITAMIN D3 [Concomitant]
     Active Substance: CHOLECALCIFEROL
  5. METOPROLOL TARTRATE. [Concomitant]
     Active Substance: METOPROLOL TARTRATE
  6. LISINOPRIL HCTZ [Concomitant]
     Active Substance: HYDROCHLOROTHIAZIDE\LISINOPRIL
     Dosage: 1 DOSAGE UNITS, 1X/DAY
  7. HCZT/TRIAMTERENE [Concomitant]
  8. PREVALITE [Suspect]
     Active Substance: CHOLESTYRAMINE
     Indication: COLITIS ULCERATIVE
     Dosage: 4 G, 3X/DAY
     Route: 048
     Dates: end: 2018
  9. BIOTIN [Concomitant]
     Active Substance: BIOTIN
  10. ELIQUIS [Concomitant]
     Active Substance: APIXABAN
  11. VITAMIN B12 [Concomitant]
     Active Substance: CYANOCOBALAMIN

REACTIONS (7)
  - Cerebrovascular accident [Unknown]
  - Concussion [Unknown]
  - Urinary tract infection [Unknown]
  - Atrial fibrillation [Unknown]
  - Fall [Unknown]
  - Vitreous floaters [Recovered/Resolved]
  - Choroid melanoma [Recovering/Resolving]

NARRATIVE: CASE EVENT DATE: 201701
